FAERS Safety Report 17157319 (Version 1)
Quarter: 2019Q4

REPORT INFORMATION
  Report Type: Spontaneous
  Country: DE (occurrence: DE)
  Receive Date: 20191216
  Receipt Date: 20191216
  Transmission Date: 20200122
  Serious: Yes (Hospitalization)
  Sender: FDA-Public Use
  Company Number: DE-ACCORD-165524

PATIENT
  Age: 57 Year
  Sex: Male

DRUGS (5)
  1. GRANULOCYTE COLONY STIMULATING [Suspect]
     Active Substance: GRANULOCYTE COLONY-STIMULATING FACTOR NOS
     Indication: PRODUCT USED FOR UNKNOWN INDICATION
     Dosage: NOT KNOWN MG, ADMINISTERED ON 05.12.2016
  2. PANTOPRAZOLE [Concomitant]
     Active Substance: PANTOPRAZOLE
     Dosage: NOT KNOWN MG, REQUIREMENT
  3. DOXORUBICIN [Suspect]
     Active Substance: DOXORUBICIN
     Indication: PRODUCT USED FOR UNKNOWN INDICATION
     Dosage: NOT KNOWN MG, ADMINISTERED ON 04.12.2017
  4. CISPLATIN. [Suspect]
     Active Substance: CISPLATIN
     Indication: PRODUCT USED FOR UNKNOWN INDICATION
     Dosage: NOT KNOWN MG, ADMINISTERED ON 04.12.2017
  5. CYCLOPHOSPHAMIDE/CYCLOPHOSPHAMIDE MONOHYDRATE [Suspect]
     Active Substance: CYCLOPHOSPHAMIDE
     Indication: PRODUCT USED FOR UNKNOWN INDICATION
     Dosage: NOT KNOWN MG, ADMINISTERED ON 04.12.2017

REACTIONS (4)
  - Dizziness [Unknown]
  - Arrhythmia [Unknown]
  - Palpitations [Unknown]
  - General physical health deterioration [Unknown]
